FAERS Safety Report 8184702-X (Version None)
Quarter: 2012Q1

REPORT INFORMATION
  Report Type: 
  Country: None (occurrence: None)
  Receive Date: 20120305
  Receipt Date: 20120305
  Transmission Date: 20120608
  Serious: Yes (Other)
  Sender: FDA-Public Use
  Company Number: None

PATIENT
  Age: 39 Year
  Sex: Female
  Weight: 49.895 kg

DRUGS (2)
  1. FLUOXETINE HYDROCHLORIDE [Suspect]
     Indication: ANXIETY
     Dosage: 20.0 MG
     Route: 048
     Dates: start: 20120217, end: 20120228
  2. FLUOXETINE HYDROCHLORIDE [Suspect]
     Indication: DEPRESSION
     Dosage: 20.0 MG
     Route: 048
     Dates: start: 20120217, end: 20120228

REACTIONS (4)
  - MIDDLE INSOMNIA [None]
  - PRODUCT QUALITY ISSUE [None]
  - MUSCLE SPASMS [None]
  - MYALGIA [None]
